FAERS Safety Report 18923619 (Version 2)
Quarter: 2021Q1

REPORT INFORMATION
  Report Type: Spontaneous
  Country: DE (occurrence: DE)
  Receive Date: 20210222
  Receipt Date: 20210312
  Transmission Date: 20210420
  Serious: Yes (Disabling, Other)
  Sender: FDA-Public Use
  Company Number: DE-PFIZER INC-2021141638

PATIENT
  Age: 4 Month
  Sex: Female

DRUGS (2)
  1. CYTOTEC [Suspect]
     Active Substance: MISOPROSTOL
     Dosage: 275 UG (AT 7 A.M.: 25 UG, 9.15 A.M.: 50 UG, 1.30 P.M.: 100 UG, 5.30 P.M.: 100 UG)
     Route: 064
     Dates: start: 20091012
  2. CYTOTEC [Suspect]
     Active Substance: MISOPROSTOL
     Indication: LABOUR INDUCTION
     Dosage: 25 UG (TOTAL)
     Route: 064
     Dates: start: 20091011

REACTIONS (10)
  - Incontinence [Not Recovered/Not Resolved]
  - Gait disturbance [Not Recovered/Not Resolved]
  - Mental impairment [Not Recovered/Not Resolved]
  - Overdose [Unknown]
  - Foetal exposure during delivery [Unknown]
  - Fine motor skill dysfunction [Not Recovered/Not Resolved]
  - Developmental delay [Not Recovered/Not Resolved]
  - Walking disability [Not Recovered/Not Resolved]
  - Strabismus [Unknown]
  - Speech disorder [Not Recovered/Not Resolved]

NARRATIVE: CASE EVENT DATE: 201003
